FAERS Safety Report 13856569 (Version 1)
Quarter: 2017Q3

REPORT INFORMATION
  Report Type: Spontaneous
  Country: US (occurrence: US)
  Receive Date: 20170810
  Receipt Date: 20170810
  Transmission Date: 20171127
  Serious: No
  Sender: FDA-Public Use
  Company Number: US-ROCHE-1358394

PATIENT
  Sex: Female

DRUGS (1)
  1. TAMIFLU [Suspect]
     Active Substance: OSELTAMIVIR PHOSPHATE
     Indication: INFLUENZA
     Route: 048
     Dates: start: 20140121, end: 20140124

REACTIONS (8)
  - Pruritus [Not Recovered/Not Resolved]
  - Measles [Unknown]
  - Tinea infection [Unknown]
  - Emotional distress [Unknown]
  - Thermal burn [Not Recovered/Not Resolved]
  - Vomiting [Unknown]
  - Mood swings [Unknown]
  - Urticaria [Not Recovered/Not Resolved]
